FAERS Safety Report 8093945-5 (Version None)
Quarter: 2012Q1

REPORT INFORMATION
  Report Type: 
  Country: None (occurrence: None)
  Receive Date: 20120130
  Receipt Date: 20120121
  Transmission Date: 20120608
  Serious: Yes (Hospitalization)
  Sender: FDA-Public Use
  Company Number: GR-US-EMD SERONO, INC.-7108399

PATIENT
  Age: 10 Year
  Sex: Male

DRUGS (2)
  1. SAIZEN [Suspect]
     Dates: start: 20110101
  2. SAIZEN [Suspect]
     Indication: PRODUCT USED FOR UNKNOWN INDICATION
     Dates: start: 20110901, end: 20111027

REACTIONS (1)
  - APPENDICITIS [None]
